FAERS Safety Report 6382886-7 (Version None)
Quarter: 2009Q3

REPORT INFORMATION
  Report Type: 
  Country: None (occurrence: None)
  Receive Date: 20090928
  Receipt Date: 20090928
  Transmission Date: 20100115
  Serious: No
  Sender: FDA-Public Use
  Company Number: None

PATIENT

DRUGS (1)
  1. GERMSTAR ALCOHOL BASED HAND SANITIZER [Suspect]

REACTIONS (1)
  - NO ADVERSE EVENT [None]
